FAERS Safety Report 20432026 (Version 1)
Quarter: 2022Q1

REPORT INFORMATION
  Report Type: Spontaneous
  Country: US (occurrence: US)
  Receive Date: 20220204
  Receipt Date: 20220204
  Transmission Date: 20220423
  Serious: Yes (Death, Other)
  Sender: FDA-Public Use
  Company Number: US-ABBVIE-22K-163-4262791-00

PATIENT

DRUGS (3)
  1. VENETOCLAX [Suspect]
     Active Substance: VENETOCLAX
     Indication: Mantle cell lymphoma
     Dosage: (20, 50, 100, 200, AND 400 MG/D) TO 400 MG/D, THROUGH CYCLE 25. (400 MG,1 IN 1 D)
     Route: 065
  2. RITUXIMAB [Suspect]
     Active Substance: RITUXIMAB
     Indication: Mantle cell lymphoma
     Dosage: ON DAY 1 OF EACH 28-DAY CYCLE FOR 6 CYCLES (375 MG/M2)
     Route: 042
  3. ACALABRUTINIB [Suspect]
     Active Substance: ACALABRUTINIB
     Indication: Mantle cell lymphoma
     Route: 065

REACTIONS (5)
  - COVID-19 [Fatal]
  - Neutropenia [Unknown]
  - Pneumonia [Unknown]
  - Infection [Unknown]
  - Hypertension [Unknown]
